FAERS Safety Report 23431742 (Version 1)
Quarter: 2024Q1

REPORT INFORMATION
  Report Type: Spontaneous
  Country: DE (occurrence: DE)
  Receive Date: 20240123
  Receipt Date: 20240123
  Transmission Date: 20240409
  Serious: Yes (Hospitalization, Other)
  Sender: FDA-Public Use
  Company Number: DE-TAKEDA-2024TUS002484

PATIENT
  Sex: Female

DRUGS (2)
  1. LISDEXAMFETAMINE DIMESYLATE [Suspect]
     Active Substance: LISDEXAMFETAMINE DIMESYLATE
     Indication: Product used for unknown indication
     Dosage: 30 MILLIGRAM
     Route: 065
  2. LEVOTHYROXINE SODIUM [Concomitant]
     Active Substance: LEVOTHYROXINE SODIUM
     Dosage: UNK
     Route: 065

REACTIONS (11)
  - Iron deficiency [Unknown]
  - Suicidal ideation [Unknown]
  - Headache [Recovered/Resolved]
  - Therapeutic product effect increased [Unknown]
  - Photosensitivity reaction [Unknown]
  - Therapeutic response shortened [Unknown]
  - Disturbance in attention [Unknown]
  - Stress [Unknown]
  - Loss of personal independence in daily activities [Recovered/Resolved]
  - Aggression [Unknown]
  - Product packaging issue [Unknown]

NARRATIVE: CASE EVENT DATE: 20240109
